FAERS Safety Report 7020004-2 (Version None)
Quarter: 2010Q3

REPORT INFORMATION
  Report Type: 
  Country: None (occurrence: None)
  Receive Date: 20100929
  Receipt Date: 20100922
  Transmission Date: 20110219
  Serious: Yes (Hospitalization)
  Sender: FDA-Public Use
  Company Number: US-BAYER-201034705NA

PATIENT
  Age: 52 Year
  Sex: Female

DRUGS (1)
  1. YAZ [Suspect]
     Indication: MENOPAUSE
     Route: 048
     Dates: start: 20100429

REACTIONS (4)
  - CHEST PAIN [None]
  - PAIN IN EXTREMITY [None]
  - PULMONARY EMBOLISM [None]
  - PULMONARY THROMBOSIS [None]
